FAERS Safety Report 15206651 (Version 1)
Quarter: 2018Q3

REPORT INFORMATION
  Report Type: Spontaneous
  Country: US (occurrence: US)
  Receive Date: 20180727
  Receipt Date: 20180727
  Transmission Date: 20181010
  Serious: No
  Sender: FDA-Public Use
  Company Number: US-PFIZER INC-2018180918

PATIENT
  Age: 54 Year
  Sex: Female

DRUGS (2)
  1. IBRANCE [Suspect]
     Active Substance: PALBOCICLIB
     Indication: BREAST CANCER FEMALE
     Dosage: 125 MG, CYCLIC (DAILY/21 DAYS ON AND 7 DAYS OFF)
     Route: 048
     Dates: start: 20180416
  2. IBRANCE [Suspect]
     Active Substance: PALBOCICLIB
     Dosage: 125 MG, CYCLIC (DAILY WITH FOOD FOR 21 DAYS ON THEN 7 DAYS OFF)
     Route: 048
     Dates: start: 20180606

REACTIONS (4)
  - Full blood count decreased [Unknown]
  - Somnolence [Unknown]
  - Asthenia [Unknown]
  - White blood cell count decreased [Unknown]

NARRATIVE: CASE EVENT DATE: 2018
